FAERS Safety Report 10154333 (Version 2)
Quarter: 2014Q2

REPORT INFORMATION
  Report Type: Spontaneous
  Country: US (occurrence: US)
  Receive Date: 20140506
  Receipt Date: 20140603
  Transmission Date: 20141212
  Serious: Yes (Other)
  Sender: FDA-Public Use
  Company Number: US-PFIZER INC-2014122636

PATIENT
  Age: 63 Year
  Sex: Male

DRUGS (6)
  1. CHANTIX [Suspect]
     Indication: SMOKING CESSATION THERAPY
     Dosage: UNK
     Route: 048
  2. CHANTIX [Suspect]
     Dosage: 1 MG, 2X/DAY
     Route: 048
  3. HYDROCHLOROTHIAZIDE [Concomitant]
     Dosage: 12.5 MG, DAILY
     Route: 048
  4. LORATADINE [Concomitant]
     Indication: HYPERSENSITIVITY
     Dosage: 10 MG, DAILY
     Route: 048
  5. OMEPRAZOLE [Concomitant]
     Dosage: 20 MG, DAILY
     Route: 048
  6. SIMVASTATIN [Concomitant]
     Dosage: 20 MG, AT BEDTIME
     Route: 048

REACTIONS (8)
  - Type V hyperlipidaemia [Unknown]
  - Benign prostatic hyperplasia [Unknown]
  - Haematuria [Unknown]
  - Urine flow decreased [Unknown]
  - Impaired fasting glucose [Unknown]
  - Hypertension [Unknown]
  - Nightmare [Unknown]
  - Drug ineffective [Unknown]
